FAERS Safety Report 4713711-5 (Version None)
Quarter: 2005Q3

REPORT INFORMATION
  Report Type: 
  Country: None (occurrence: None)
  Receive Date: 20050713
  Receipt Date: 20050627
  Transmission Date: 20060218
  Serious: Yes (Other)
  Sender: FDA-Public Use
  Company Number: USA050598537

PATIENT
  Age: 53 Year
  Sex: Male

DRUGS (6)
  1. GEMZAR [Suspect]
     Dosage: 1000 MG/M2 OTHER
     Route: 050
     Dates: start: 20050512, end: 20050518
  2. RADIATION THERAPY [Concomitant]
  3. DECADRON /00016001/ (DEXAMETHASONE /00016001/) [Concomitant]
  4. LISINOPRIL AND HYDROCHLOROTHIAZIDE [Concomitant]
  5. DILANTIN (PHENYTOIN /00017401/) [Concomitant]
  6. PREVACID [Concomitant]

REACTIONS (2)
  - DRY SKIN [None]
  - RECALL PHENOMENON [None]
